FAERS Safety Report 6526856-4 (Version None)
Quarter: 2010Q1

REPORT INFORMATION
  Report Type: 
  Country: None (occurrence: None)
  Receive Date: 20100104
  Receipt Date: 20100104
  Transmission Date: 20100710
  Serious: Yes (Other)
  Sender: FDA-Public Use
  Company Number: None

PATIENT
  Age: 62 Year
  Sex: Female
  Weight: 54.4316 kg

DRUGS (1)
  1. NITROFURANTOIN MONO-MCR 100MYL MYLAN [Suspect]
     Indication: URINARY TRACT INFECTION
     Dosage: 1 TAB 2X DAY PO
     Route: 048
     Dates: start: 20091231, end: 20091231

REACTIONS (8)
  - BLOOD PRESSURE SYSTOLIC INCREASED [None]
  - DIZZINESS [None]
  - DYSPNOEA [None]
  - EPISTAXIS [None]
  - HEART RATE INCREASED [None]
  - MUSCULAR WEAKNESS [None]
  - PARAESTHESIA [None]
  - TREMOR [None]
